FAERS Safety Report 9296766 (Version 1)
Quarter: 2013Q2

REPORT INFORMATION
  Report Type: Spontaneous
  Country: US (occurrence: US)
  Receive Date: 20130517
  Receipt Date: 20130517
  Transmission Date: 20140414
  Serious: Yes (Other)
  Sender: FDA-Public Use
  Company Number: CHPA2013US007216

PATIENT
  Age: 65 Year
  Sex: Female

DRUGS (1)
  1. DESENEX MICONAZOLE NITRATE [Suspect]
     Indication: FUNGAL INFECTION
     Dosage: UNK DF, PRN
     Route: 061

REACTIONS (4)
  - Myocardial infarction [Recovered/Resolved]
  - Therapeutic response unexpected [Unknown]
  - Off label use [Unknown]
  - Drug administered at inappropriate site [Unknown]
